FAERS Safety Report 9013534 (Version 2)
Quarter: 2013Q1

REPORT INFORMATION
  Report Type: Spontaneous
  Country: NZ (occurrence: None)
  Receive Date: 20121231
  Receipt Date: 20130108
  Transmission Date: 20140127
  Serious: Yes (Other)
  Sender: FDA-Public Use
  Company Number: VAL_01210_2012

PATIENT
  Age: 87 Year
  Sex: Female

DRUGS (5)
  1. METOPROLOL (METOPROLOL (METOPROLOL TARTRATE)) 95 MG [Suspect]
     Indication: PRODUCT USED FOR UNKNOWN INDICATION
     Dosage: DF?
     Route: 048
  2. SPIRONOLACTONE [Concomitant]
  3. LOSARTAN [Concomitant]
  4. PARACETAMOL [Concomitant]
  5. DIOXIN [Concomitant]

REACTIONS (3)
  - Therapeutic response decreased [None]
  - Transient ischaemic attack [None]
  - Product quality issue [None]
